FAERS Safety Report 7998185-3 (Version None)
Quarter: 2011Q4

REPORT INFORMATION
  Report Type: 
  Country: None (occurrence: None)
  Receive Date: 20111221
  Receipt Date: 20110330
  Transmission Date: 20120403
  Serious: No
  Sender: FDA-Public Use
  Company Number: US-GLAXOSMITHKLINE-A0920726A

PATIENT
  Age: 61 Year
  Sex: Female

DRUGS (11)
  1. ACTOS [Concomitant]
  2. BONIVA [Concomitant]
  3. LOVAZA [Suspect]
     Indication: PRODUCT USED FOR UNKNOWN INDICATION
     Dosage: 2CAP TWICE PER DAY
     Route: 048
     Dates: start: 20080101
  4. METHOTREXATE [Concomitant]
  5. MELOXICAM [Concomitant]
  6. FOLIC ACID [Concomitant]
  7. DULERA ORAL INHALATION [Concomitant]
  8. EXFORGE [Concomitant]
  9. SIMCOR [Concomitant]
  10. CYMBALTA [Concomitant]
  11. SPIRIVA [Concomitant]

REACTIONS (4)
  - MALAISE [None]
  - DYSGEUSIA [None]
  - ABDOMINAL DISCOMFORT [None]
  - PRODUCT QUALITY ISSUE [None]
